FAERS Safety Report 15337592 (Version 2)
Quarter: 2018Q3

REPORT INFORMATION
  Report Type: Spontaneous
  Country: US (occurrence: US)
  Receive Date: 20180831
  Receipt Date: 20180905
  Transmission Date: 20181010
  Serious: No
  Sender: FDA-Public Use
  Company Number: US-PFIZER INC-2018347867

PATIENT
  Age: 48 Year
  Sex: Female
  Weight: 88.45 kg

DRUGS (4)
  1. NEURONTIN [Suspect]
     Active Substance: GABAPENTIN
     Indication: ARTHRALGIA
  2. BUTALBITAL APAP CAFFEINE [Concomitant]
     Indication: MIGRAINE
     Dosage: UNK (325/50/40)
  3. NEURONTIN [Suspect]
     Active Substance: GABAPENTIN
     Indication: BIPOLAR DISORDER
  4. NEURONTIN [Suspect]
     Active Substance: GABAPENTIN
     Indication: ANXIETY
     Dosage: UNK, 1X/DAY (1ML?5ML AT BEDTIME)
     Route: 048
     Dates: start: 20180304, end: 201806

REACTIONS (4)
  - Product taste abnormal [Unknown]
  - Product use in unapproved indication [Unknown]
  - Dysgeusia [Unknown]
  - Headache [Recovered/Resolved]

NARRATIVE: CASE EVENT DATE: 20180304
